FAERS Safety Report 8124310-X (Version None)
Quarter: 2012Q1

REPORT INFORMATION
  Report Type: 
  Country: None (occurrence: None)
  Receive Date: 20120209
  Receipt Date: 20120201
  Transmission Date: 20120608
  Serious: Yes (Hospitalization)
  Sender: FDA-Public Use
  Company Number: US-US-EMD SERONO, INC.-7110717

PATIENT
  Sex: Female

DRUGS (3)
  1. REBIF [Suspect]
     Indication: MULTIPLE SCLEROSIS
     Route: 058
     Dates: start: 20110601, end: 20110901
  2. VITAMIN B COMPLEX CAP [Concomitant]
  3. VITAMIN B COMPLEX CAP [Concomitant]

REACTIONS (8)
  - URINARY TRACT INFECTION [None]
  - DEHYDRATION [None]
  - DUODENAL ULCER [None]
  - HAEMOGLOBIN ABNORMAL [None]
  - MULTIPLE SCLEROSIS RELAPSE [None]
  - SEPSIS [None]
  - ULCER [None]
  - RENAL FAILURE [None]
